FAERS Safety Report 12429720 (Version 1)
Quarter: 2016Q2

REPORT INFORMATION
  Report Type: Spontaneous
  Country: US (occurrence: US)
  Receive Date: 20160602
  Receipt Date: 20160602
  Transmission Date: 20160815
  Serious: Yes (Other)
  Sender: FDA-Public Use
  Company Number: US-FRI-1000085052

PATIENT
  Sex: Female

DRUGS (1)
  1. SAPHRIS [Suspect]
     Active Substance: ASENAPINE MALEATE

REACTIONS (5)
  - Feeling abnormal [Unknown]
  - Unevaluable event [Unknown]
  - Loss of consciousness [Unknown]
  - Skin odour abnormal [Unknown]
  - Oral discomfort [Unknown]
